FAERS Safety Report 7090911-3 (Version None)
Quarter: 2010Q4

REPORT INFORMATION
  Report Type: 
  Country: None (occurrence: None)
  Receive Date: 20101109
  Receipt Date: 20101028
  Transmission Date: 20110411
  Serious: Yes (Death, Hospitalization, Other)
  Sender: FDA-Public Use
  Company Number: US-ELI_LILLY_AND_COMPANY-US201010007093

PATIENT
  Sex: Female

DRUGS (9)
  1. FORTEO [Suspect]
     Indication: OSTEOPOROSIS
     Dosage: 20 UG, DAILY (1/D)
     Dates: end: 20101023
  2. ARICEPT [Concomitant]
  3. VITAMIN B-12 [Concomitant]
     Route: 030
  4. CITALOPRAM HYDROBROMIDE [Concomitant]
  5. LEVOTHYROXINE [Concomitant]
  6. PRILOSEC [Concomitant]
  7. LASIX [Concomitant]
  8. ALDACTONE [Concomitant]
  9. LYRICA [Concomitant]

REACTIONS (4)
  - BONE DISORDER [None]
  - COAGULOPATHY [None]
  - MULTI-ORGAN FAILURE [None]
  - PAIN [None]
